FAERS Safety Report 20938049 (Version 10)
Quarter: 2023Q2

REPORT INFORMATION
  Report Type: Report from Study
  Country: US (occurrence: US)
  Receive Date: 20220609
  Receipt Date: 20230522
  Transmission Date: 20230722
  Serious: Yes (Hospitalization)
  Sender: FDA-Public Use
  Company Number: US-JNJFOC-20220607327

PATIENT
  Age: 85 Year
  Sex: Female

DRUGS (5)
  1. DARATUMUMAB [Suspect]
     Active Substance: DARATUMUMAB
     Indication: Plasma cell myeloma
     Dosage: THE LAST DOSE PRIOR TO EVENT ONSET WAS 25/MAY/2022.
     Route: 041
     Dates: start: 20220413
  2. DEXAMETHASONE [Suspect]
     Active Substance: DEXAMETHASONE
     Indication: Plasma cell myeloma
     Dosage: THE LAST DOSE  PRIOR TO EVENT ONSET WAS 25/MAY/2022.?DATE OF DOSE DELAYED: 04-MAY-2022.
     Route: 048
     Dates: start: 20220413, end: 20220525
  3. LENALIDOMIDE [Suspect]
     Active Substance: LENALIDOMIDE
     Indication: Plasma cell myeloma
     Dosage: DATE OF DOSE DELAYED: 30-MAY-2022
     Route: 048
     Dates: start: 20220414
  4. IXAZOMIB [Suspect]
     Active Substance: IXAZOMIB
     Indication: Plasma cell myeloma
     Dosage: MOST RECENT DOSE OF IXAZOMIB RECEIVED PRIOR TO THE SAE ONSET, WAS ON 25-MAY-2022.
     Route: 048
     Dates: start: 20220413
  5. LACTULOSE [Concomitant]
     Active Substance: LACTULOSE
     Indication: Constipation
     Dosage: 10G/15 ML
     Route: 048
     Dates: start: 20160609

REACTIONS (1)
  - Colitis [Recovered/Resolved]

NARRATIVE: CASE EVENT DATE: 20220530
